FAERS Safety Report 13023819 (Version 2)
Quarter: 2016Q4

REPORT INFORMATION
  Report Type: Spontaneous
  Country: None (occurrence: US)
  Receive Date: 20161213
  Receipt Date: 20161214
  Transmission Date: 20170207
  Serious: No
  Sender: FDA-Public Use
  Company Number: US-RARE DISEASE THERAPEUTICS, INC.-1060743

PATIENT
  Age: 23 Year
  Sex: Female
  Weight: 62.14 kg

DRUGS (1)
  1. CYSTADANE [Suspect]
     Active Substance: BETAINE
     Indication: HOMOCYSTINURIA
     Dates: start: 20161022, end: 20161106

REACTIONS (3)
  - No adverse event [None]
  - Treatment noncompliance [None]
  - Accidental overdose [None]

NARRATIVE: CASE EVENT DATE: 20161022
